FAERS Safety Report 8311172-0 (Version None)
Quarter: 2012Q2

REPORT INFORMATION
  Report Type: 
  Country: None (occurrence: None)
  Receive Date: 20120425
  Receipt Date: 20120417
  Transmission Date: 20120825
  Serious: Yes (Death, Other)
  Sender: FDA-Public Use
  Company Number: JP-ABBOTT-12P-087-0922210-00

PATIENT
  Sex: Male
  Weight: 51.6 kg

DRUGS (15)
  1. WARFARIN SODIUM [Concomitant]
     Indication: THROMBOSIS PROPHYLAXIS
     Route: 048
     Dates: start: 20050713, end: 20110724
  2. PREDNISOLONE [Concomitant]
     Dates: start: 20110301, end: 20110328
  3. HUMIRA [Suspect]
     Indication: CROHN'S DISEASE
     Route: 058
     Dates: start: 20110118, end: 20110118
  4. HUMIRA [Suspect]
     Route: 058
     Dates: start: 20110201, end: 20110201
  5. PREDNISOLONE [Concomitant]
     Indication: CROHN'S DISEASE
     Route: 048
     Dates: start: 20110118, end: 20110131
  6. PREDNISOLONE [Concomitant]
     Dates: start: 20110412
  7. LOPERAMIDE HCL [Concomitant]
     Indication: PROPHYLAXIS AGAINST DIARRHOEA
  8. HUMIRA [Suspect]
     Route: 058
     Dates: end: 20110719
  9. DIMETICONE [Concomitant]
     Indication: ABDOMINAL DISTENSION
  10. DIMETICONE [Concomitant]
     Indication: PROPHYLAXIS
  11. OPIUM TINCTURE [Concomitant]
     Indication: PROPHYLAXIS AGAINST DIARRHOEA
     Route: 048
  12. PREDNISOLONE [Concomitant]
     Dates: start: 20110201, end: 20110218
  13. PREDNISOLONE [Concomitant]
     Dates: start: 20110329, end: 20110411
  14. HUMIRA [Suspect]
     Dates: start: 20110215, end: 20110710
  15. RABEPRAZOLE SODIUM [Concomitant]
     Indication: PROPHYLAXIS AGAINST GASTROINTESTINAL ULCER

REACTIONS (2)
  - SUDDEN DEATH [None]
  - THROMBOSIS [None]
